FAERS Safety Report 19456183 (Version 1)
Quarter: 2021Q2

REPORT INFORMATION
  Report Type: Spontaneous
  Country: US (occurrence: US)
  Receive Date: 20210624
  Receipt Date: 20210624
  Transmission Date: 20210717
  Serious: Yes (Hospitalization)
  Sender: FDA-Public Use
  Company Number: US-SA-2021SA200090

PATIENT
  Age: 80 Year
  Sex: Female

DRUGS (1)
  1. LANTUS SOLOSTAR [Suspect]
     Active Substance: INSULIN GLARGINE
     Dosage: 10 OR 16 UNITS AT BEDTIME
     Route: 065

REACTIONS (5)
  - Eye contusion [Unknown]
  - COVID-19 [Unknown]
  - Fall [Unknown]
  - Skin abrasion [Unknown]
  - Arthralgia [Unknown]
